FAERS Safety Report 9461378 (Version 1)
Quarter: 2013Q3

REPORT INFORMATION
  Report Type: Spontaneous
  Country: US (occurrence: US)
  Receive Date: 20130816
  Receipt Date: 20130816
  Transmission Date: 20140515
  Serious: Yes (Other)
  Sender: FDA-Public Use
  Company Number: US-ROCHE-1258316

PATIENT
  Sex: Male

DRUGS (4)
  1. XELODA [Suspect]
     Indication: BONE CANCER
     Route: 048
     Dates: start: 20120717, end: 20130729
  2. XELODA [Suspect]
     Indication: BONE CANCER
  3. LAPATINIB [Suspect]
     Indication: PRODUCT USED FOR UNKNOWN INDICATION
     Route: 048
     Dates: start: 20120302, end: 20130726
  4. LAPATINIB [Suspect]
     Indication: BONE CANCER

REACTIONS (2)
  - Drug ineffective [Unknown]
  - Recurrent cancer [Unknown]
